FAERS Safety Report 16322610 (Version 1)
Quarter: 2019Q2

REPORT INFORMATION
  Report Type: Spontaneous
  Country: FR (occurrence: FR)
  Receive Date: 20190516
  Receipt Date: 20190516
  Transmission Date: 20190711
  Serious: Yes (Disabling, Other)
  Sender: FDA-Public Use
  Company Number: FR-BAUSCH-BL-2019-014221

PATIENT
  Age: 66 Year
  Sex: Male
  Weight: 63 kg

DRUGS (4)
  1. VIRGAN (GANCICLOVIR) [Suspect]
     Active Substance: GANCICLOVIR
     Indication: KERATITIS VIRAL
     Route: 047
     Dates: start: 20190103, end: 201901
  2. ORAVIR [Suspect]
     Active Substance: FAMCICLOVIR
     Indication: KERATITIS VIRAL
     Route: 048
     Dates: start: 2017
  3. PRESERVISION 3 [Concomitant]
     Active Substance: MINERALS\OMEGA-3 FATTY ACIDS\VITAMINS
     Indication: PROPHYLAXIS
     Route: 065
  4. MAGNESIUM [ALUMINIUM HYDROXIDE;MAGNESIUM HYDROXIDE] [Concomitant]
     Active Substance: ALUMINUM HYDROXIDE\MAGNESIUM HYDROXIDE
     Indication: SUPPLEMENTATION THERAPY
     Route: 065

REACTIONS (2)
  - Vision blurred [Not Recovered/Not Resolved]
  - Keratitis [Not Recovered/Not Resolved]

NARRATIVE: CASE EVENT DATE: 201810
